FAERS Safety Report 8877507 (Version 2)
Quarter: 2012Q4

REPORT INFORMATION
  Report Type: 
  Country: US (occurrence: US)
  Receive Date: 20121024
  Receipt Date: 20121123
  Transmission Date: 20130627
  Serious: Yes (Hospitalization)
  Sender: FDA-Public Use
  Company Number: US-PFIZER INC-2012261621

PATIENT
  Age: 64 Year
  Sex: Female
  Weight: 90.7 kg

DRUGS (5)
  1. REVATIO [Suspect]
     Indication: PULMONARY ARTERIAL HYPERTENSION
     Dosage: 20 mg, 3x/day
     Route: 048
     Dates: start: 201105
  2. JANUVIA [Concomitant]
     Indication: DIABETES
     Dosage: UNK
  3. NOVOLOG [Concomitant]
     Indication: DIABETES
     Dosage: UNK
  4. LANTUS [Concomitant]
     Indication: DIABETES
     Dosage: UNK
  5. GLIMEPIRIDE [Concomitant]
     Indication: DIABETES
     Dosage: 4 mg, UNK

REACTIONS (1)
  - Ammonia increased [Unknown]
